FAERS Safety Report 9536749 (Version 1)
Quarter: 2013Q3

REPORT INFORMATION
  Report Type: Spontaneous
  Country: US (occurrence: None)
  Receive Date: 20130918
  Receipt Date: 20130918
  Transmission Date: 20140515
  Serious: Yes (Hospitalization)
  Sender: FDA-Public Use
  Company Number: None

PATIENT
  Age: 77 Year
  Sex: Male
  Weight: 63.6 kg

DRUGS (1)
  1. QUETIAPINE [Suspect]
     Indication: DEMENTIA
     Route: 048
     Dates: start: 20130321, end: 20130610

REACTIONS (3)
  - Decreased appetite [None]
  - Coordination abnormal [None]
  - Fall [None]
